FAERS Safety Report 17447247 (Version 1)
Quarter: 2020Q1

REPORT INFORMATION
  Report Type: Spontaneous
  Country: US (occurrence: US)
  Receive Date: 20200221
  Receipt Date: 20200221
  Transmission Date: 20200409
  Serious: No
  Sender: FDA-Public Use
  Company Number: US-AMNEAL PHARMACEUTICALS-2019-IPXL-00717

PATIENT
  Age: 75 Year
  Sex: Female
  Weight: 49 kg

DRUGS (1)
  1. EMVERM [Suspect]
     Active Substance: MEBENDAZOLE
     Indication: PARASITIC GASTROENTERITIS
     Dosage: 1 DOSAGE FORM
     Route: 048
     Dates: start: 20190311

REACTIONS (2)
  - Furuncle [Recovering/Resolving]
  - Skin burning sensation [Recovered/Resolved]

NARRATIVE: CASE EVENT DATE: 201903
